FAERS Safety Report 4779606-6 (Version None)
Quarter: 2005Q3

REPORT INFORMATION
  Report Type: 
  Country: None (occurrence: None)
  Receive Date: 20050923
  Receipt Date: 20050822
  Transmission Date: 20060218
  Serious: Yes (Hospitalization)
  Sender: FDA-Public Use
  Company Number: M-05-310

PATIENT
  Age: 82 Year
  Sex: Male
  Weight: 65.7716 kg

DRUGS (11)
  1. AMIODARONE [Suspect]
     Indication: HEART RATE INCREASED
     Dosage: SEE IMAGE
     Route: 048
     Dates: start: 20050215, end: 20050608
  2. AMIODARONE [Suspect]
     Indication: POST PROCEDURAL COMPLICATION
     Dosage: SEE IMAGE
     Route: 048
     Dates: start: 20050215, end: 20050608
  3. AMIODARONE [Suspect]
     Indication: HEART RATE INCREASED
     Dosage: SEE IMAGE
     Route: 048
     Dates: start: 20050609, end: 20050615
  4. AMIODARONE [Suspect]
     Indication: POST PROCEDURAL COMPLICATION
     Dosage: SEE IMAGE
     Route: 048
     Dates: start: 20050609, end: 20050615
  5. . [Concomitant]
  6. PLAVIX [Concomitant]
  7. SYNTHROID [Concomitant]
  8. METOPROLOL [Concomitant]
  9. ASPIRIN [Concomitant]
  10. CENTRUM MVI [Concomitant]
  11. OSCAL [Concomitant]

REACTIONS (11)
  - ANOREXIA [None]
  - COORDINATION ABNORMAL [None]
  - DIFFICULTY IN WALKING [None]
  - DYSPHONIA [None]
  - FAECALOMA [None]
  - FATIGUE [None]
  - HALO VISION [None]
  - MUSCULAR WEAKNESS [None]
  - PARKINSONIAN GAIT [None]
  - VISUAL DISTURBANCE [None]
  - WEIGHT DECREASED [None]
